FAERS Safety Report 21274769 (Version 1)
Quarter: 2022Q3

REPORT INFORMATION
  Report Type: Spontaneous
  Country: US (occurrence: None)
  Receive Date: 20220831
  Receipt Date: 20220831
  Transmission Date: 20221027
  Serious: Yes (Death, Life-Threatening, Hospitalization, Disabling)
  Sender: FDA-Public Use
  Company Number: None

PATIENT
  Age: 79 Year
  Sex: Female
  Weight: 56.25 kg

DRUGS (2)
  1. NIVOLUMAB [Suspect]
     Active Substance: NIVOLUMAB
     Indication: Lung neoplasm malignant
     Dates: start: 20220708, end: 20220722
  2. IPILIMUMAB [Suspect]
     Active Substance: IPILIMUMAB

REACTIONS (17)
  - Hypotension [None]
  - Muscular weakness [None]
  - Fatigue [None]
  - Diplopia [None]
  - Hyponatraemia [None]
  - Leukocytosis [None]
  - Alanine aminotransferase increased [None]
  - Aspartate aminotransferase increased [None]
  - Bundle branch block right [None]
  - Myositis [None]
  - Neurotoxicity [None]
  - Myasthenia gravis [None]
  - Myocarditis [None]
  - Troponin increased [None]
  - Atrioventricular block [None]
  - Hospice care [None]
  - General physical health deterioration [None]

NARRATIVE: CASE EVENT DATE: 20220801
